FAERS Safety Report 17084701 (Version 3)
Quarter: 2020Q1

REPORT INFORMATION
  Report Type: Report from Study
  Country: US (occurrence: US)
  Receive Date: 20191127
  Receipt Date: 20200319
  Transmission Date: 20200409
  Serious: Yes (Hospitalization)
  Sender: FDA-Public Use
  Company Number: US-ACTELION-A-NJ2019-190548

PATIENT
  Sex: Male
  Weight: 108.84 kg

DRUGS (4)
  1. UPTRAVI [Suspect]
     Active Substance: SELEXIPAG
     Indication: PULMONARY ARTERIAL HYPERTENSION
     Dosage: 1600 MCG, BID
     Route: 048
  2. UPTRAVI [Suspect]
     Active Substance: SELEXIPAG
     Dosage: UNK
     Route: 048
     Dates: start: 20180827
  3. ADEMPAS [Concomitant]
     Active Substance: RIOCIGUAT
  4. COUMADIN [Concomitant]
     Active Substance: WARFARIN SODIUM

REACTIONS (10)
  - Pleural effusion [Unknown]
  - Anaemia [Unknown]
  - Headache [Unknown]
  - Pneumothorax [Unknown]
  - Toothache [Unknown]
  - Nasopharyngitis [Unknown]
  - Hospitalisation [Unknown]
  - Pain in jaw [Unknown]
  - Tooth extraction [Unknown]
  - Tooth fracture [Unknown]
